FAERS Safety Report 18616742 (Version 1)
Quarter: 2020Q4

REPORT INFORMATION
  Report Type: Report from Study
  Country: US (occurrence: US)
  Receive Date: 20201215
  Receipt Date: 20201215
  Transmission Date: 20210114
  Serious: Yes (Other)
  Sender: FDA-Public Use
  Company Number: US-JNJFOC-20201218080

PATIENT
  Age: 48 Year
  Sex: Male

DRUGS (3)
  1. STELARA [Suspect]
     Active Substance: USTEKINUMAB
     Indication: PSORIATIC ARTHROPATHY
     Dosage: TOOK FOR 1 YEAR
     Route: 058
  2. STELARA [Suspect]
     Active Substance: USTEKINUMAB
     Dosage: DAY 0, WEEK 4 AND EVERY 12 WEEKS
     Route: 058
     Dates: start: 20201110
  3. GLATOPA [Concomitant]
     Active Substance: GLATIRAMER ACETATE
     Indication: MULTIPLE SCLEROSIS

REACTIONS (3)
  - Surgery [Unknown]
  - COVID-19 [Recovering/Resolving]
  - Psoriatic arthropathy [Unknown]

NARRATIVE: CASE EVENT DATE: 20201111
